FAERS Safety Report 20445963 (Version 1)
Quarter: 2022Q1

REPORT INFORMATION
  Report Type: Spontaneous
  Country: US (occurrence: US)
  Receive Date: 20220208
  Receipt Date: 20220208
  Transmission Date: 20220423
  Serious: Yes (Other)
  Sender: FDA-Public Use
  Company Number: US-PFIZER INC-202200145024

PATIENT
  Age: 43 Year
  Sex: Female
  Weight: 63.039 kg

DRUGS (1)
  1. XELJANZ [Suspect]
     Active Substance: TOFACITINIB CITRATE
     Indication: Rheumatoid arthritis
     Dosage: 10 MG, 1X/DAY (TAKING TWO OF THE 5MG TABLETS ONCE A DAY)
     Route: 048
     Dates: start: 2021

REACTIONS (5)
  - Weight decreased [Unknown]
  - Circumstance or information capable of leading to medication error [Unknown]
  - Malaise [Unknown]
  - Fibromyalgia [Unknown]
  - Tooth fracture [Unknown]
